FAERS Safety Report 18606035 (Version 1)
Quarter: 2020Q4

REPORT INFORMATION
  Report Type: Spontaneous
  Country: CA (occurrence: CA)
  Receive Date: 20201211
  Receipt Date: 20201211
  Transmission Date: 20210114
  Serious: No
  Sender: FDA-Public Use
  Company Number: CA-VIVUS, INC.-2020V1000022

PATIENT
  Sex: Male
  Weight: 41.31 kg

DRUGS (3)
  1. IRON SUPPLEMENTS [Concomitant]
     Active Substance: IRON
     Indication: IRON DEFICIENCY
     Route: 048
     Dates: start: 201902
  2. MULTIVITAMIN [Concomitant]
     Active Substance: VITAMINS
     Indication: VITAMIN SUPPLEMENTATION
     Dosage: 1 CAPSULE/TD
  3. PANCREAZE [Suspect]
     Active Substance: PANCRELIPASE AMYLASE\PANCRELIPASE LIPASE\PANCRELIPASE PROTEASE
     Indication: CYSTIC FIBROSIS
     Dosage: 5 OR 6 CAPSULES WITH EVERY MEAL, 2 OR 3 WIITH SNACKS
     Dates: start: 2019

REACTIONS (1)
  - Malabsorption [Recovered/Resolved]
